FAERS Safety Report 5250815-5 (Version None)
Quarter: 2007Q1

REPORT INFORMATION
  Report Type: 
  Country: None (occurrence: None)
  Receive Date: 20070228
  Receipt Date: 20061005
  Transmission Date: 20070707
  Serious: Yes (Other)
  Sender: FDA-Public Use
  Company Number: US-GLAXOSMITHKLINE-A0611797A

PATIENT
  Age: 45 Year
  Sex: Female

DRUGS (2)
  1. LAMICTAL [Suspect]
     Indication: DRUG USE FOR UNKNOWN INDICATION
     Dosage: 25MG PER DAY
     Route: 048
     Dates: start: 20060601
  2. CYMBALTA [Concomitant]

REACTIONS (9)
  - AURICULAR SWELLING [None]
  - BLISTER [None]
  - DERMATITIS ALLERGIC [None]
  - EYE SWELLING [None]
  - LIP SWELLING [None]
  - NASAL OEDEMA [None]
  - RASH [None]
  - RASH PRURITIC [None]
  - SKIN ULCER [None]
